FAERS Safety Report 14567200 (Version 2)
Quarter: 2018Q1

REPORT INFORMATION
  Report Type: Spontaneous
  Country: IT (occurrence: IT)
  Receive Date: 20180223
  Receipt Date: 20180315
  Transmission Date: 20180509
  Serious: Yes (Hospitalization)
  Sender: FDA-Public Use
  Company Number: IT-PFIZER INC-2017141661

PATIENT
  Age: 59 Year
  Sex: Female

DRUGS (2)
  1. HALCION [Suspect]
     Active Substance: TRIAZOLAM
     Indication: DRUG ABUSE
     Dosage: 7.5 MG, TOTAL
     Route: 048
  2. XANAX [Suspect]
     Active Substance: ALPRAZOLAM
     Indication: DRUG ABUSE
     Dosage: 30 DF, TOTAL
     Route: 048

REACTIONS (6)
  - Sedation [Unknown]
  - Overdose [Unknown]
  - Drug abuse [Unknown]
  - Sopor [Unknown]
  - Anal incontinence [Unknown]
  - Loss of consciousness [Unknown]

NARRATIVE: CASE EVENT DATE: 20170123
